FAERS Safety Report 5656226-2 (Version None)
Quarter: 2008Q1

REPORT INFORMATION
  Report Type: 
  Country: None (occurrence: None)
  Receive Date: 20080305
  Receipt Date: 20080218
  Transmission Date: 20080703
  Serious: Yes (Life-Threatening, Disabling, Other)
  Sender: FDA-Public Use
  Company Number: 2007JP001414

PATIENT
  Age: 43 Year
  Sex: Female

DRUGS (25)
  1. TACROLIMUS [Suspect]
     Indication: MYASTHENIA GRAVIS
     Dosage: 3 MG, ORAL; 4 MG, ORAL; 1 MG, ORAL; 2 MG, ORAL; 1.5 MG, BID, ORAL; 1.5 MG, ORAL
     Route: 048
     Dates: start: 20060615, end: 20061121
  2. TACROLIMUS [Suspect]
     Indication: MYASTHENIA GRAVIS
     Dosage: 3 MG, ORAL; 4 MG, ORAL; 1 MG, ORAL; 2 MG, ORAL; 1.5 MG, BID, ORAL; 1.5 MG, ORAL
     Route: 048
     Dates: start: 20061122, end: 20071208
  3. TACROLIMUS [Suspect]
     Indication: MYASTHENIA GRAVIS
     Dosage: 3 MG, ORAL; 4 MG, ORAL; 1 MG, ORAL; 2 MG, ORAL; 1.5 MG, BID, ORAL; 1.5 MG, ORAL
     Route: 048
     Dates: start: 20071215, end: 20071218
  4. TACROLIMUS [Suspect]
     Indication: MYASTHENIA GRAVIS
     Dosage: 3 MG, ORAL; 4 MG, ORAL; 1 MG, ORAL; 2 MG, ORAL; 1.5 MG, BID, ORAL; 1.5 MG, ORAL
     Route: 048
     Dates: start: 20071219, end: 20071225
  5. TACROLIMUS [Suspect]
     Indication: MYASTHENIA GRAVIS
     Dosage: 3 MG, ORAL; 4 MG, ORAL; 1 MG, ORAL; 2 MG, ORAL; 1.5 MG, BID, ORAL; 1.5 MG, ORAL
     Route: 048
     Dates: start: 20071225, end: 20080115
  6. TACROLIMUS [Suspect]
     Indication: MYASTHENIA GRAVIS
     Dosage: 3 MG, ORAL; 4 MG, ORAL; 1 MG, ORAL; 2 MG, ORAL; 1.5 MG, BID, ORAL; 1.5 MG, ORAL
     Route: 048
     Dates: start: 20080116, end: 20080116
  7. ATARAX-P(HYDROXYZINE HYDROCHLORIDE) PER ORAL NOS [Suspect]
     Dosage: 25 MG, ORAL
     Route: 048
     Dates: start: 20060605
  8. IMURAN [Suspect]
     Dosage: 50 MG, ORAL; 100 MG, ORAL; 50 MG, ORAL; 25 MG, ORAL; ORAL
     Route: 048
     Dates: start: 20061206, end: 20061212
  9. IMURAN [Suspect]
     Dosage: 50 MG, ORAL; 100 MG, ORAL; 50 MG, ORAL; 25 MG, ORAL; ORAL
     Route: 048
     Dates: start: 20061213, end: 20061221
  10. IMURAN [Suspect]
     Dosage: 50 MG, ORAL; 100 MG, ORAL; 50 MG, ORAL; 25 MG, ORAL; ORAL
     Route: 048
     Dates: start: 20061222, end: 20070327
  11. IMURAN [Suspect]
     Dosage: 50 MG, ORAL; 100 MG, ORAL; 50 MG, ORAL; 25 MG, ORAL; ORAL
     Route: 048
     Dates: start: 20070330, end: 20071102
  12. IMURAN [Suspect]
     Dosage: 50 MG, ORAL; 100 MG, ORAL; 50 MG, ORAL; 25 MG, ORAL; ORAL
     Route: 048
     Dates: end: 20071109
  13. PREDNISOLONE [Concomitant]
  14. MESTINON (PYRIDOSTIGMINE BROMIDE) PER ORAL NOS [Concomitant]
  15. OMEPRAZOLE PER ORAL NOS [Concomitant]
  16. SELBEX (TEPRENONE) PER ORAL NOS [Concomitant]
  17. BONALON (ALENDRONIC ACID) PER ORAL NOS [Concomitant]
  18. LIPITOR (ATORVASTATIN CALCIUM) FORMULATION UNKNOWN [Concomitant]
  19. MUCOBULIN (AMBROXOL HYDROCHLORIDE) FORMULATION UNKNOWN [Concomitant]
  20. URSO (URSODEOXYCHOLIC ACID) FORMULATION UNKNOWN [Concomitant]
  21. MAGNESIUM OXIDE (MAGNESIUM OXIDE) FORMULATION UNKNOWN [Concomitant]
  22. INSULIN HUMAN (INSULIN HUMAN) FORMULATION UNKNOWN [Concomitant]
  23. ASPARA K (ASPARTATE POTASSIUM) FORMULATION UNKNOWN [Concomitant]
  24. NEUTROGIN (LENOGRASTIM) FORMULATION UNKNOWN [Concomitant]
  25. IMMUNOGLOBULIN (IMMUNOGLOBULIN) FORMULATION UNKNOWN [Concomitant]

REACTIONS (10)
  - APLASTIC ANAEMIA [None]
  - CONSTIPATION [None]
  - HEPATIC FUNCTION ABNORMAL [None]
  - HERPES VIRUS INFECTION [None]
  - HYPERGLYCAEMIA [None]
  - HYPOAESTHESIA [None]
  - JAUNDICE [None]
  - PANCYTOPENIA [None]
  - STOMATITIS [None]
  - THIRST [None]
